FAERS Safety Report 10188808 (Version 1)
Quarter: 2014Q2

REPORT INFORMATION
  Report Type: Spontaneous
  Country: US (occurrence: None)
  Receive Date: 20140521
  Receipt Date: 20140521
  Transmission Date: 20141212
  Serious: Yes (Other)
  Sender: FDA-Public Use
  Company Number: None

PATIENT
  Age: 33 Year
  Sex: Female
  Weight: 63.5 kg

DRUGS (1)
  1. EFFEXOR XR [Suspect]

REACTIONS (10)
  - Influenza like illness [None]
  - Vertigo [None]
  - Nausea [None]
  - Panic attack [None]
  - Sleep terror [None]
  - Tremor [None]
  - Crying [None]
  - Headache [None]
  - Feeling abnormal [None]
  - Withdrawal syndrome [None]
